FAERS Safety Report 10196796 (Version 1)
Quarter: 2014Q2

REPORT INFORMATION
  Report Type: Spontaneous
  Country: US (occurrence: US)
  Receive Date: 20140527
  Receipt Date: 20140527
  Transmission Date: 20141212
  Serious: No
  Sender: FDA-Public Use
  Company Number: US-009507513-1405USA012130

PATIENT
  Age: 11 Year
  Sex: Male
  Weight: 31.75 kg

DRUGS (3)
  1. CLARITIN CHEWABLE TABLETS [Suspect]
     Indication: SEASONAL ALLERGY
     Dosage: 3-4 DOSIS (2 TABS EACH DOSE)
     Route: 048
     Dates: start: 20140520
  2. CLARITIN CHEWABLE TABLETS [Suspect]
     Dosage: 10 MG, AT BEDTIME FOR ABOUT 1 WEEK
     Route: 048
     Dates: start: 20140513
  3. MUCINEX COUGH FOR KIDS [Concomitant]
     Indication: COUGH
     Dosage: UNK
     Dates: start: 201405

REACTIONS (2)
  - Accidental overdose [Unknown]
  - No adverse event [Unknown]
